FAERS Safety Report 19337422 (Version 1)
Quarter: 2021Q2

REPORT INFORMATION
  Report Type: Spontaneous
  Country: US (occurrence: US)
  Receive Date: 20210530
  Receipt Date: 20210530
  Transmission Date: 20210717
  Serious: Yes (Other)
  Sender: FDA-Public Use
  Company Number: US-PURDUE-USA-2020-0210235

PATIENT
  Sex: Male

DRUGS (9)
  1. OXYCONTIN [Suspect]
     Active Substance: OXYCODONE HYDROCHLORIDE
     Indication: NEPHROLITHIASIS
     Dosage: UNK
     Route: 048
  2. OXYCONTIN [Suspect]
     Active Substance: OXYCODONE HYDROCHLORIDE
     Indication: BACK PAIN
  3. OXYCODONE HCL CR TABLETS (SIMILAR TO NDA 22?272) [Suspect]
     Active Substance: OXYCODONE HYDROCHLORIDE
     Indication: BACK PAIN
  4. TRAMADOL CR TABLETS (RHODES 21?745) [Suspect]
     Active Substance: TRAMADOL
     Indication: BACK PAIN
  5. OXYCONTIN [Suspect]
     Active Substance: OXYCODONE HYDROCHLORIDE
     Indication: ARTHRALGIA
  6. OXYCODONE HCL CR TABLETS (SIMILAR TO NDA 22?272) [Suspect]
     Active Substance: OXYCODONE HYDROCHLORIDE
     Indication: NEPHROLITHIASIS
     Dosage: UNK
     Route: 048
  7. OXYCODONE HCL CR TABLETS (SIMILAR TO NDA 22?272) [Suspect]
     Active Substance: OXYCODONE HYDROCHLORIDE
     Indication: ARTHRALGIA
  8. TRAMADOL CR TABLETS (RHODES 21?745) [Suspect]
     Active Substance: TRAMADOL
     Indication: RENAL PAIN
     Dosage: UNKNOWN
     Route: 048
  9. TRAMADOL CR TABLETS (RHODES 21?745) [Suspect]
     Active Substance: TRAMADOL
     Indication: ARTHRALGIA

REACTIONS (3)
  - Disturbance in attention [Unknown]
  - Drug dependence [Unknown]
  - Irregular sleep phase [Unknown]
